FAERS Safety Report 10601126 (Version 1)
Quarter: 2014Q4

REPORT INFORMATION
  Report Type: Spontaneous
  Country: CH (occurrence: CH)
  Receive Date: 20141124
  Receipt Date: 20141124
  Transmission Date: 20150529
  Serious: Yes (Hospitalization)
  Sender: FDA-Public Use
  Company Number: CH-JNJFOC-20141110320

PATIENT
  Age: 78 Year
  Sex: Female

DRUGS (9)
  1. XARELTO [Suspect]
     Active Substance: RIVAROXABAN
     Indication: PORTAL VEIN THROMBOSIS
     Route: 048
     Dates: start: 201405, end: 201410
  2. CARVEDILOL. [Concomitant]
     Active Substance: CARVEDILOL
     Route: 065
  3. TOCOPHEROL [Concomitant]
     Active Substance: TOCOPHEROL
     Route: 065
  4. NICORANDIL [Concomitant]
     Active Substance: NICORANDIL
     Route: 065
  5. URSODIOL. [Concomitant]
     Active Substance: URSODIOL
     Route: 065
  6. PANTOPRAZOLE SODIUM [Concomitant]
     Active Substance: PANTOPRAZOLE SODIUM
     Route: 065
  7. SPIRONOLACTON [Concomitant]
     Active Substance: SPIRONOLACTONE
     Route: 065
  8. FUROSEMID [Concomitant]
     Active Substance: FUROSEMIDE
     Route: 065
  9. HYDROXYZINE [Concomitant]
     Active Substance: HYDROXYZINE\HYDROXYZINE HYDROCHLORIDE
     Route: 065

REACTIONS (4)
  - Portal vein thrombosis [Recovering/Resolving]
  - Mesenteric vein thrombosis [Recovering/Resolving]
  - Off label use [Recovered/Resolved]
  - Drug ineffective for unapproved indication [Recovered/Resolved]

NARRATIVE: CASE EVENT DATE: 201410
